FAERS Safety Report 5048005-4 (Version None)
Quarter: 2006Q3

REPORT INFORMATION
  Report Type: 
  Country: None (occurrence: None)
  Receive Date: 20060711
  Receipt Date: 20060619
  Transmission Date: 20061208
  Serious: Yes (Other)
  Sender: FDA-Public Use
  Company Number: JP-NOVOPROD-254330

PATIENT
  Age: 61 Year
  Sex: Male
  Weight: 60 kg

DRUGS (20)
  1. PENFILL R CHU [Suspect]
     Indication: INSULIN-REQUIRING TYPE II DIABETES MELLITUS
     Route: 058
     Dates: start: 20000101, end: 20060526
  2. PENFILL 50R CHU [Suspect]
     Indication: INSULIN-REQUIRING TYPE II DIABETES MELLITUS
     Route: 058
     Dates: start: 20000101, end: 20060526
  3. MILFADIN [Concomitant]
     Indication: HYPERTENSION
     Route: 048
     Dates: end: 20060501
  4. FOLIAMIN [Concomitant]
     Indication: ANAEMIA
     Route: 048
     Dates: end: 20060501
  5. ADONA [Concomitant]
     Indication: ANAEMIA
     Dosage: 30 MG, QD
     Route: 048
     Dates: end: 20060501
  6. RIKAVARIN [Concomitant]
     Indication: ANAEMIA
     Route: 048
     Dates: end: 20060501
  7. RADEN [Concomitant]
     Indication: GASTRITIS
     Route: 048
     Dates: end: 20060501
  8. AMOBAN [Concomitant]
     Dosage: 7.5 MG, QD
     Route: 048
     Dates: start: 20060501
  9. NORVASC                            /00972401/ [Concomitant]
     Dosage: 5 MG, QD
     Route: 048
     Dates: start: 20060501
  10. OMEPRAL [Concomitant]
     Dosage: 20 MG, QD
     Route: 048
     Dates: start: 20060501
  11. LACTULOSE [Concomitant]
     Dosage: 30 ML, QD
     Route: 048
     Dates: start: 20060507
  12. ZYRTEC [Concomitant]
     Dosage: 10 MG, QD
     Route: 048
     Dates: start: 20060501, end: 20060508
  13. ANTEBATE [Concomitant]
     Dates: start: 20060501
  14. WHITE PETROLEUM [Concomitant]
     Dates: start: 20060501
  15. LIVACT                             /00847901/ [Concomitant]
     Route: 048
     Dates: start: 20060513
  16. ALLELOCK [Concomitant]
     Dosage: 10 MG, QD
     Route: 048
     Dates: start: 20060525, end: 20060601
  17. RESTAMIN [Concomitant]
     Dates: start: 20060525
  18. SENNOSIDE [Concomitant]
     Route: 048
     Dates: start: 20060527
  19. HUMACART-N [Concomitant]
     Dates: start: 20060527
  20. AMINOLEBAN                         /00957801/ [Concomitant]
     Dosage: UNK, UNK
     Dates: start: 20060507

REACTIONS (5)
  - ANAEMIA [None]
  - BLOOD IMMUNOGLOBULIN E INCREASED [None]
  - HEPATIC ENCEPHALOPATHY [None]
  - INJECTION SITE INDURATION [None]
  - RASH [None]
